FAERS Safety Report 8385812-4 (Version None)
Quarter: 2012Q2

REPORT INFORMATION
  Report Type: 
  Country: None (occurrence: None)
  Receive Date: 20120525
  Receipt Date: 20120518
  Transmission Date: 20120825
  Serious: Yes (Hospitalization)
  Sender: FDA-Public Use
  Company Number: US-BAYER-2012-023874

PATIENT
  Age: 40 Year
  Sex: Female
  Weight: 77.098 kg

DRUGS (10)
  1. FLONASE [Concomitant]
  2. MAXALT-MLT [Concomitant]
     Indication: MIGRAINE
     Dosage: 10 MG, UNK
     Dates: start: 20050101
  3. DROSPIRENONE AND ETHINYL ESTRADIOL [Suspect]
     Indication: MENSTRUAL DISORDER
  4. BENADRYL [Concomitant]
  5. YAZ [Suspect]
     Indication: CONTRACEPTION
     Dosage: UNK
     Dates: start: 20100101, end: 20100601
  6. YAZ [Suspect]
     Indication: MENSTRUAL DISORDER
  7. DROSPIRENONE AND ETHINYL ESTRADIOL [Suspect]
     Indication: CONTRACEPTION
     Dosage: UNK
     Dates: start: 20100601, end: 20110901
  8. ZANTAC [Concomitant]
     Dosage: 150 MG, DAILY
  9. WOMEN+#8217;S ONE A DAY VITAMINS [Concomitant]
     Indication: MEDICAL DIET
     Dosage: ONE DAILY
     Dates: start: 20000101, end: 20110101
  10. PRILOSEC [Concomitant]
     Dosage: 20 MG, DAILY

REACTIONS (1)
  - DEEP VEIN THROMBOSIS [None]
